FAERS Safety Report 10262360 (Version 1)
Quarter: 2014Q2

REPORT INFORMATION
  Report Type: Spontaneous
  Country: FR (occurrence: FR)
  Receive Date: 20140626
  Receipt Date: 20140626
  Transmission Date: 20141212
  Serious: Yes (Death, Hospitalization)
  Sender: FDA-Public Use
  Company Number: ALCN2014FR003625

PATIENT
  Age: 82 Year
  Sex: Male

DRUGS (16)
  1. TOBRADEX [Suspect]
     Dosage: 4 GTT, QD
     Route: 047
  2. GABAPENTINE [Suspect]
     Indication: NEURALGIA
     Dosage: 100 MG, BID
     Route: 048
     Dates: start: 20140420, end: 20140425
  3. PLAVIX [Suspect]
     Dosage: 75 MG, QD
     Route: 048
     Dates: end: 20140429
  4. AMLODIPINE [Suspect]
     Dosage: 5 MG, QD
     Route: 048
  5. MODOPAR [Suspect]
     Dosage: 375 MG, QD
     Route: 048
  6. PARACETAMOL [Suspect]
     Dosage: 4 G, QD
     Route: 048
  7. TAHOR [Suspect]
     Dosage: 10 MG, QD
     Route: 048
  8. CALCIDIA [Suspect]
     Dosage: 3 DF, QD
     Route: 048
  9. TEMERIT [Suspect]
     Dosage: 5 MG, QD
     Route: 048
  10. MATRIFEN [Suspect]
     Dosage: 1 DF, QD
     Route: 003
  11. INEXIUM//ESOMEPRAZOLE MAGNESIUM [Suspect]
     Dosage: 20 MG, QD
     Route: 048
  12. TRANSIPEG                          /01618701/ [Concomitant]
     Dosage: 2 DF, QD
     Route: 048
  13. FLIXOTIDE DISKUS [Concomitant]
     Dosage: 500 UG, BID
     Route: 055
  14. SPIRIVA [Concomitant]
     Dosage: 1 DF, QD
     Route: 055
  15. TERBUTALINE SULFATE [Concomitant]
     Dosage: 2.5 MG/ML, TID
     Route: 055
  16. INSTANYL [Concomitant]
     Dosage: 100 DOSE, QD
     Route: 045

REACTIONS (1)
  - Thrombocytopenia [Fatal]
